FAERS Safety Report 10183329 (Version 2)
Quarter: 2014Q2

REPORT INFORMATION
  Report Type: Spontaneous
  Country: US (occurrence: None)
  Receive Date: 20140416
  Receipt Date: 20140604
  Transmission Date: 20141212
  Serious: No
  Sender: FDA-Public Use
  Company Number: 163-POMAL-13115424

PATIENT
  Age: 61 Year
  Sex: Male
  Weight: 85.73 kg

DRUGS (5)
  1. POMALYST [Suspect]
     Indication: PLASMA CELL MYELOMA
     Dosage: 4 MG, 21 IN 28 D
     Route: 048
     Dates: start: 20131030
  2. PREDNISONE [Suspect]
     Indication: RASH
     Dates: start: 201311
  3. AMLODIPINE (AMLODIPINE) [Concomitant]
  4. GLIPIZIDE (GLIPIZIDE) [Concomitant]
  5. LEVOXYL (LEVOTHYROXINE SODIUM) [Concomitant]

REACTIONS (15)
  - Vision blurred [None]
  - Dry mouth [None]
  - Chest pain [None]
  - Back pain [None]
  - Asthenia [None]
  - Dizziness [None]
  - Rash pruritic [None]
  - Constipation [None]
  - Confusional state [None]
  - Muscle spasms [None]
  - White blood cell count decreased [None]
  - Hypothyroidism [None]
  - Blood magnesium decreased [None]
  - Haemorrhoids [None]
  - Dry eye [None]
